FAERS Safety Report 25020147 (Version 3)
Quarter: 2025Q1

REPORT INFORMATION
  Report Type: Spontaneous
  Country: US (occurrence: US)
  Receive Date: 20250227
  Receipt Date: 20250324
  Transmission Date: 20250409
  Serious: Yes (Other)
  Sender: PFIZER
  Company Number: US-PFIZER INC-202400310074

PATIENT
  Age: 55 Year
  Sex: Female

DRUGS (3)
  1. VELSIPITY [Suspect]
     Active Substance: ETRASIMOD ARGININE
  2. LEVOTHYROXINE [Concomitant]
     Active Substance: LEVOTHYROXINE
     Indication: Thyroid disorder
  3. APPLE CIDER VINEGAR [MALUS SPP. VINEGAR EXTRACT] [Concomitant]

REACTIONS (3)
  - Dental discomfort [Unknown]
  - Illness [Unknown]
  - Cough [Unknown]
